APPROVED DRUG PRODUCT: ETODOLAC
Active Ingredient: ETODOLAC
Strength: 600MG
Dosage Form/Route: TABLET, EXTENDED RELEASE;ORAL
Application: A075943 | Product #003
Applicant: ANI PHARMACEUTICALS INC
Approved: Jul 26, 2002 | RLD: No | RS: No | Type: DISCN